FAERS Safety Report 16264973 (Version 1)
Quarter: 2019Q2

REPORT INFORMATION
  Report Type: Report from Study
  Country: CA (occurrence: CA)
  Receive Date: 20190502
  Receipt Date: 20190502
  Transmission Date: 20190711
  Serious: Yes (Other)
  Sender: FDA-Public Use
  Company Number: CA-TAKEDA-2019TUS027156

PATIENT
  Age: 65 Year
  Sex: Female

DRUGS (2)
  1. IXAZOMIB [Suspect]
     Active Substance: IXAZOMIB
     Indication: PLASMA CELL MYELOMA
     Dosage: 2.3 MILLIGRAM
     Route: 048
     Dates: start: 20170414
  2. IXAZOMIB [Suspect]
     Active Substance: IXAZOMIB
     Dosage: 3 UNK
     Route: 048

REACTIONS (1)
  - Plasma cell myeloma [Unknown]
